FAERS Safety Report 4268872-1 (Version None)
Quarter: 2004Q1

REPORT INFORMATION
  Report Type: 
  Country: None (occurrence: None)
  Receive Date: 20040109
  Receipt Date: 20031230
  Transmission Date: 20041129
  Serious: Yes (Death)
  Sender: FDA-Public Use
  Company Number: HQWYE975630DEC03

PATIENT
  Age: 32 Year
  Sex: Male

DRUGS (2)
  1. EFFEXOR XR [Suspect]
     Dosage: 75 MG, ORAL
     Route: 048
  2. ALCOHOL (ETHANOL,) [Suspect]
     Dosage: ORAL
     Route: 048

REACTIONS (2)
  - ALCOHOL USE [None]
  - COMPLETED SUICIDE [None]
